FAERS Safety Report 4898641-0 (Version None)
Quarter: 2006Q1

REPORT INFORMATION
  Report Type: 
  Country: None (occurrence: None)
  Receive Date: 20060127
  Receipt Date: 20060117
  Transmission Date: 20060701
  Serious: Yes (Hospitalization, Other)
  Sender: FDA-Public Use
  Company Number: 2005049266

PATIENT
  Age: 56 Year
  Sex: Female
  Weight: 135.1719 kg

DRUGS (13)
  1. BEXTRA [Suspect]
     Indication: ARTHRALGIA
     Dosage: (20 MG, 1 IN 1 D), ORAL
     Route: 048
     Dates: start: 20030101
  2. BEXTRA [Suspect]
     Indication: SWELLING
     Dosage: (20 MG, 1 IN 1 D), ORAL
     Route: 048
     Dates: start: 20030101
  3. DUONEB (IPRATROPIUM BROMIDE, SALBUTAMOL SULFATE) [Concomitant]
  4. ASPIRIN [Concomitant]
  5. COREG [Concomitant]
  6. AEROBID [Concomitant]
  7. LASIX [Concomitant]
  8. METFORMIN HCL [Concomitant]
  9. DARVOCET-N 100 [Concomitant]
  10. ALTACE [Concomitant]
  11. NASACORT [Concomitant]
  12. COUMADIN [Concomitant]
  13. OXYGEN (OXYGEN) [Concomitant]

REACTIONS (9)
  - ANXIETY [None]
  - CEREBROVASCULAR ACCIDENT [None]
  - CORONARY ARTERY OCCLUSION [None]
  - DEEP VEIN THROMBOSIS [None]
  - INJURY [None]
  - INTERNATIONAL NORMALISED RATIO DECREASED [None]
  - MYOCARDIAL INFARCTION [None]
  - PAIN [None]
  - THROMBOSIS [None]
